FAERS Safety Report 4650035-9 (Version None)
Quarter: 2005Q2

REPORT INFORMATION
  Report Type: 
  Country: None (occurrence: None)
  Receive Date: 20050428
  Receipt Date: 20050414
  Transmission Date: 20051028
  Serious: Yes (Hospitalization, Other)
  Sender: FDA-Public Use
  Company Number: 2005S1002570

PATIENT
  Sex: Male

DRUGS (2)
  1. EXTENDED PHENYTOIN SODIUM [Suspect]
     Indication: CONVULSION
     Dosage: PO
     Route: 048
     Dates: start: 20030324, end: 20030416
  2. FOLIC ACID [Suspect]
     Indication: VITAMIN SUPPLEMENTATION
     Dosage: PO
     Route: 048

REACTIONS (2)
  - DRUG EFFECT DECREASED [None]
  - GRAND MAL CONVULSION [None]
